FAERS Safety Report 21035550 (Version 1)
Quarter: 2022Q3

REPORT INFORMATION
  Report Type: Spontaneous
  Country: FR (occurrence: FR)
  Receive Date: 20220701
  Receipt Date: 20220701
  Transmission Date: 20221027
  Serious: Yes (Other)
  Sender: FDA-Public Use
  Company Number: None

PATIENT
  Age: 74 Year
  Sex: Male
  Weight: 99 kg

DRUGS (2)
  1. LEVOFLOXACIN [Suspect]
     Active Substance: LEVOFLOXACIN
     Indication: Arthritis
     Route: 042
     Dates: start: 20220515
  2. CLOXACILLIN [Suspect]
     Active Substance: CLOXACILLIN
     Indication: Arthritis
     Route: 042
     Dates: start: 20220515, end: 20220525

REACTIONS (2)
  - Mixed liver injury [Recovered/Resolved]
  - Renal failure [Recovering/Resolving]

NARRATIVE: CASE EVENT DATE: 20220520
